FAERS Safety Report 17746863 (Version 1)
Quarter: 2020Q2

REPORT INFORMATION
  Report Type: Spontaneous
  Country: IT (occurrence: IT)
  Receive Date: 20200505
  Receipt Date: 20200505
  Transmission Date: 20200714
  Serious: Yes (Other)
  Sender: FDA-Public Use
  Company Number: IT-MYLANLABS-2020M1043402

PATIENT
  Age: 22 Year
  Sex: Male

DRUGS (2)
  1. ABILIFY [Suspect]
     Active Substance: ARIPIPRAZOLE
     Indication: BORDERLINE PERSONALITY DISORDER
     Dosage: 1 MG, QD
     Route: 065
  2. FLUVOXAMINE [Suspect]
     Active Substance: FLUVOXAMINE
     Indication: BORDERLINE PERSONALITY DISORDER
     Dosage: 2 DF, QD
     Route: 065

REACTIONS (6)
  - Depression [Unknown]
  - Thinking abnormal [Unknown]
  - Sexual inhibition [Unknown]
  - Symptom recurrence [Unknown]
  - Anger [Unknown]
  - Product use in unapproved indication [Unknown]
